FAERS Safety Report 11339957 (Version 1)
Quarter: 2015Q3

REPORT INFORMATION
  Report Type: Spontaneous
  Country: US (occurrence: None)
  Receive Date: 20150804
  Receipt Date: 20150804
  Transmission Date: 20151125
  Serious: Yes (Other)
  Sender: FDA-Public Use
  Company Number: None

PATIENT
  Age: 67 Year
  Sex: Male
  Weight: 74.84 kg

DRUGS (6)
  1. FISH OIL [Concomitant]
     Active Substance: FISH OIL
  2. VITAMIN E [Concomitant]
     Active Substance: .ALPHA.-TOCOPHEROL
  3. MELOXICAM. [Concomitant]
     Active Substance: MELOXICAM
  4. CENTRUM SILVER MULTIVITAMIN [Concomitant]
  5. MINOCYCLINE [Suspect]
     Active Substance: MINOCYCLINE\MINOCYCLINE HYDROCHLORIDE
     Indication: ROSACEA
     Dates: start: 20150706, end: 20150707
  6. FLONASE [Concomitant]
     Active Substance: FLUTICASONE PROPIONATE

REACTIONS (12)
  - Arthralgia [None]
  - Cough [None]
  - Decreased appetite [None]
  - Chromaturia [None]
  - Blood alkaline phosphatase increased [None]
  - Dyspnoea [None]
  - Blood urea increased [None]
  - Aspartate aminotransferase increased [None]
  - Fatigue [None]
  - Pyrexia [None]
  - Alanine aminotransferase increased [None]
  - No reaction on previous exposure to drug [None]

NARRATIVE: CASE EVENT DATE: 20150707
